FAERS Safety Report 23958797 (Version 1)
Quarter: 2024Q2

REPORT INFORMATION
  Report Type: Spontaneous
  Country: FR (occurrence: None)
  Receive Date: 20240611
  Receipt Date: 20240611
  Transmission Date: 20240716
  Serious: Yes (Hospitalization)
  Sender: FDA-Public Use
  Company Number: 2024A128319

PATIENT
  Age: 68 Year
  Sex: Male
  Weight: 61 kg

DRUGS (1)
  1. DAPAGLIFLOZIN [Suspect]
     Active Substance: DAPAGLIFLOZIN
     Indication: Cardiac failure
     Dosage: 1 CP IN THE MORNING
     Route: 048
     Dates: start: 20230319, end: 20240514

REACTIONS (1)
  - Orchitis [Recovering/Resolving]

NARRATIVE: CASE EVENT DATE: 20240429
